FAERS Safety Report 21790274 (Version 2)
Quarter: 2025Q4

REPORT INFORMATION
  Report Type: Other
  Country: EU (occurrence: EU)
  Receive Date: 20221228
  Receipt Date: 20251022
  Transmission Date: 20260117
  Serious: Yes (Hospitalization, Other)
  Sender: DECIPHERA PHARMACEUTICALS
  Company Number: EU-DECIPHERA PHARMACEUTICALS LLC-2022ES001099

PATIENT
  Sex: Male

DRUGS (1)
  1. QINLOCK [Suspect]
     Active Substance: RIPRETINIB
     Indication: Gastrointestinal stromal tumour
     Dosage: 150 MILLIGRAM, QD

REACTIONS (1)
  - Pancreatitis acute [Recovered/Resolved]
